FAERS Safety Report 7812358-1 (Version None)
Quarter: 2011Q4

REPORT INFORMATION
  Report Type: 
  Country: None (occurrence: None)
  Receive Date: 20111013
  Receipt Date: 20111004
  Transmission Date: 20120403
  Serious: Yes (Other)
  Sender: FDA-Public Use
  Company Number: IE-GLAXOSMITHKLINE-B0729932A

PATIENT
  Sex: Male

DRUGS (7)
  1. DUTASTERIDE/TAMSULOSIN HYDROCHLORIDE [Suspect]
     Indication: PROSTATISM
     Route: 048
     Dates: start: 20110610, end: 20110623
  2. ISTIN [Concomitant]
     Indication: HYPERTENSION
  3. CAPRIN [Concomitant]
     Indication: PERIPHERAL VASCULAR DISORDER
     Dosage: 75MG PER DAY
  4. INDAPAMIDE [Concomitant]
     Indication: HYPERTENSION
  5. ATENOLOL [Concomitant]
     Indication: HYPERTENSION
     Dosage: 25MG PER DAY
  6. PRAXILENE [Concomitant]
     Indication: PERIPHERAL VASCULAR DISORDER
     Dosage: 100MG PER DAY
  7. DONA [Concomitant]
     Dosage: 1SAC PER DAY

REACTIONS (4)
  - PARKINSONISM [None]
  - MUSCULOSKELETAL STIFFNESS [None]
  - MOBILITY DECREASED [None]
  - DISABILITY [None]
